FAERS Safety Report 9632965 (Version 2)
Quarter: 2014Q1

REPORT INFORMATION
  Report Type: Spontaneous
  Country: US (occurrence: US)
  Receive Date: 20131018
  Receipt Date: 20140219
  Transmission Date: 20141002
  Serious: Yes (Death)
  Sender: FDA-Public Use
  Company Number: US-BRISTOL-MYERS SQUIBB COMPANY-19550722

PATIENT
  Age: 54 Year
  Sex: Male

DRUGS (11)
  1. BYETTA [Suspect]
     Indication: TYPE 2 DIABETES MELLITUS
     Dates: start: 20100716, end: 201104
  2. ADVIL [Concomitant]
     Indication: PAIN
     Dosage: TAB
     Route: 048
  3. LEVEMIR [Concomitant]
     Dosage: INJ
  4. VICODIN ES [Concomitant]
     Indication: PAIN
     Dosage: 1DF:75-750MG TAB
     Route: 048
  5. AMBIEN [Concomitant]
     Dosage: TAB,ALSO TAKEN 5MG
     Route: 048
  6. ATIVAN [Concomitant]
     Indication: NAUSEA
     Dosage: TAB
     Route: 048
  7. LISINOPRIL + HCTZ [Concomitant]
     Dosage: 1DF:20-25 MG TAB
     Route: 048
  8. MULTIVITAMIN [Concomitant]
     Dosage: 1DF:1 TAB
     Route: 048
  9. NOVOLOG [Concomitant]
     Route: 058
  10. PRILOSEC [Concomitant]
     Dosage: ENTERIC COATED,20MG CAPS
     Route: 048
  11. PROCHLORPERAZINE MALEATE [Concomitant]
     Indication: NAUSEA
     Dosage: TAB
     Route: 048

REACTIONS (1)
  - Pancreatic carcinoma metastatic [Fatal]
